FAERS Safety Report 4667825-9 (Version None)
Quarter: 2005Q2

REPORT INFORMATION
  Report Type: 
  Country: None (occurrence: None)
  Receive Date: 20050520
  Receipt Date: 20050224
  Transmission Date: 20051028
  Serious: Yes (Hospitalization, Other)
  Sender: FDA-Public Use
  Company Number: US-MERCK-0502USA03470

PATIENT
  Age: 50 Year
  Sex: Male
  Weight: 134 kg

DRUGS (18)
  1. VIOXX [Suspect]
     Route: 048
     Dates: start: 20001215, end: 20040815
  2. VIOXX [Suspect]
     Route: 048
     Dates: start: 20001122, end: 20001201
  3. VIOXX [Suspect]
     Route: 048
     Dates: end: 20030304
  4. LEXAPRO [Concomitant]
     Indication: ANXIETY
     Route: 048
     Dates: start: 20030110, end: 20031201
  5. LEXAPRO [Concomitant]
     Indication: DEPRESSION
     Route: 048
     Dates: start: 20030110, end: 20031201
  6. KEMADRIN [Concomitant]
     Indication: EXTRAPYRAMIDAL DISORDER
     Route: 048
  7. DEPAKOTE [Concomitant]
     Indication: BIPOLAR DISORDER
     Route: 048
     Dates: start: 20011214, end: 20050315
  8. ASPIRIN [Concomitant]
     Route: 048
  9. ATENOLOL [Concomitant]
     Indication: HYPERTENSION
     Route: 048
     Dates: start: 19970103, end: 20050201
  10. ALBUTEROL [Concomitant]
     Indication: ASTHMA
     Route: 055
  11. MICRO-K [Concomitant]
     Indication: HYPOKALAEMIA
     Route: 048
  12. SEROQUEL [Concomitant]
     Indication: SCHIZOPHRENIA
     Route: 048
     Dates: start: 20020430, end: 20050221
  13. GEMFIBROZIL [Concomitant]
     Indication: HYPERLIPIDAEMIA
     Route: 048
     Dates: start: 19970103, end: 20030818
  14. PERSANTINE [Concomitant]
     Route: 048
  15. NEXIUM [Concomitant]
     Indication: GASTROOESOPHAGEAL REFLUX PROPHYLAXIS
     Route: 048
  16. NPH INSULIN [Concomitant]
     Route: 058
  17. NICODERM [Concomitant]
     Route: 065
  18. ZYPREXA [Concomitant]
     Route: 065
     Dates: end: 20020430

REACTIONS (29)
  - ANXIETY [None]
  - ASTHMA [None]
  - CARDIAC FAILURE CONGESTIVE [None]
  - CEREBROVASCULAR ACCIDENT [None]
  - CHEST PAIN [None]
  - CHRONIC OBSTRUCTIVE PULMONARY DISEASE [None]
  - COSTOCHONDRITIS [None]
  - DEPENDENT PERSONALITY DISORDER [None]
  - DYSLIPIDAEMIA [None]
  - EMOTIONAL DISTRESS [None]
  - EMPHYSEMA [None]
  - EXTRAPYRAMIDAL DISORDER [None]
  - GOUT [None]
  - HAEMORRHOIDS [None]
  - HERPES VIRUS INFECTION [None]
  - HYPERTENSION [None]
  - MAJOR DEPRESSION [None]
  - MENISCUS LESION [None]
  - MUSCULOSKELETAL DISCOMFORT [None]
  - MYALGIA [None]
  - NEPHROLITHIASIS [None]
  - OBSESSIVE-COMPULSIVE PERSONALITY DISORDER [None]
  - OEDEMA PERIPHERAL [None]
  - PAIN [None]
  - PERSONALITY DISORDER [None]
  - RENAL CYST [None]
  - RHINITIS ALLERGIC [None]
  - SCHIZOAFFECTIVE DISORDER [None]
  - TRANSIENT ISCHAEMIC ATTACK [None]
